FAERS Safety Report 23820034 (Version 6)
Quarter: 2025Q2

REPORT INFORMATION
  Report Type: Spontaneous
  Country: US (occurrence: US)
  Receive Date: 20240506
  Receipt Date: 20250516
  Transmission Date: 20250716
  Serious: No
  Sender: NOVARTIS
  Company Number: US-002147023-NVSC2024US095080

PATIENT

DRUGS (1)
  1. NETSPOT [Suspect]
     Active Substance: GALLIUM OXODOTREOTIDE GA-68
     Indication: Product used for unknown indication
     Route: 065
     Dates: start: 20240426, end: 20240426

REACTIONS (4)
  - Product use issue [Unknown]
  - Product administration error [Unknown]
  - Product impurity [Unknown]
  - Product quality control issue [Unknown]
